FAERS Safety Report 7102967-X (Version None)
Quarter: 2010Q4

REPORT INFORMATION
  Report Type: 
  Country: None (occurrence: None)
  Receive Date: 20101115
  Receipt Date: 20101103
  Transmission Date: 20110411
  Serious: Yes (Hospitalization)
  Sender: FDA-Public Use
  Company Number: CH-JNJFOC-20101101051

PATIENT
  Age: 77 Year
  Sex: Female
  Weight: 88 kg

DRUGS (12)
  1. RISPERDAL [Suspect]
     Indication: ILL-DEFINED DISORDER
     Route: 048
  2. PARACETAMOL [Suspect]
     Indication: BACK PAIN
     Route: 065
  3. PARACETAMOL [Suspect]
     Indication: PAIN IN EXTREMITY
     Route: 065
  4. IBRUPROFEN [Suspect]
     Indication: BACK PAIN
     Dosage: 2 TO 6 TIMES DAILY
     Route: 048
  5. IBRUPROFEN [Suspect]
     Indication: PAIN IN EXTREMITY
     Dosage: 2 TO 6 TIMES DAILY
     Route: 048
  6. CARBASALATE CALCIUM [Suspect]
     Indication: BACK PAIN
     Dosage: UPTO 1100 MG
     Route: 065
  7. CARBASALATE CALCIUM [Suspect]
     Indication: PAIN IN EXTREMITY
     Dosage: UPTO 1100 MG
     Route: 065
  8. PRAVALOTIN [Suspect]
     Indication: ILL-DEFINED DISORDER
     Route: 048
  9. NOVALGIN [Suspect]
     Indication: BACK PAIN
     Route: 065
  10. NOVALGIN [Suspect]
     Indication: PAIN IN EXTREMITY
     Route: 065
  11. ASPIRIN [Suspect]
     Indication: BACK PAIN
     Route: 065
  12. ASPIRIN [Suspect]
     Indication: PAIN IN EXTREMITY
     Route: 065

REACTIONS (9)
  - DYSAESTHESIA [None]
  - GAIT DISTURBANCE [None]
  - HEPATIC ENZYME INCREASED [None]
  - HEPATIC FAILURE [None]
  - HEPATIC STEATOSIS [None]
  - HEPATOMEGALY [None]
  - HYPOKALAEMIA [None]
  - LIVER DISORDER [None]
  - VERTIGO [None]
